FAERS Safety Report 5223664-1 (Version None)
Quarter: 2007Q1

REPORT INFORMATION
  Report Type: 
  Country: None (occurrence: None)
  Receive Date: 20070130
  Receipt Date: 20070116
  Transmission Date: 20070707
  Serious: Yes (Hospitalization)
  Sender: FDA-Public Use
  Company Number: CAWYE844214DEC06

PATIENT
  Age: 54 Year
  Sex: Female

DRUGS (7)
  1. EFFEXOR XR [Suspect]
     Indication: ANXIETY
     Route: 048
     Dates: start: 20020101
  2. EFFEXOR XR [Interacting]
     Indication: PANIC ATTACK
  3. EFFEXOR XR [Interacting]
     Indication: POST-TRAUMATIC STRESS DISORDER
  4. PANTOPRAZOLE SODIUM [Suspect]
     Indication: GASTRIC HAEMORRHAGE
  5. NAPROXEN [Concomitant]
     Indication: MENSTRUAL DISCOMFORT
  6. ATIVAN [Concomitant]
     Dosage: 0.25 MG DAILY (1/2 A TABLET) PO
     Route: 048
  7. PREVACID [Interacting]
     Indication: GASTRIC HAEMORRHAGE
     Dosage: 30 MG QAM
     Route: 048
     Dates: start: 20061113, end: 20061212

REACTIONS (17)
  - ASTHENIA [None]
  - BLOOD CALCIUM INCREASED [None]
  - CONFUSIONAL STATE [None]
  - DIZZINESS [None]
  - DRUG DOSE OMISSION [None]
  - DRUG INTERACTION [None]
  - DRUG WITHDRAWAL SYNDROME [None]
  - DYSPNOEA [None]
  - GASTRIC HAEMORRHAGE [None]
  - GASTROINTESTINAL HAEMORRHAGE [None]
  - HAEMOGLOBIN DECREASED [None]
  - HEADACHE [None]
  - MALAISE [None]
  - MEDICATION ERROR [None]
  - MELAENA [None]
  - TACHYCARDIA [None]
  - WRONG DRUG ADMINISTERED [None]
